FAERS Safety Report 24366774 (Version 1)
Quarter: 2024Q3

REPORT INFORMATION
  Report Type: Spontaneous
  Country: AU (occurrence: AU)
  Receive Date: 20240926
  Receipt Date: 20240926
  Transmission Date: 20241017
  Serious: Yes (Other)
  Sender: CIPLA
  Company Number: AU-SANDOZ-SDZ2023AU050031

PATIENT

DRUGS (1)
  1. LENALIDOMIDE [Suspect]
     Active Substance: LENALIDOMIDE
     Indication: Product used for unknown indication
     Dosage: 5 MILLIGRAM, UNK
     Route: 065

REACTIONS (4)
  - Ileus paralytic [Unknown]
  - Bile acid malabsorption [Unknown]
  - Occipital neuralgia [Recovered/Resolved]
  - Diarrhoea [Unknown]
